FAERS Safety Report 8004908-X (Version None)
Quarter: 2011Q4

REPORT INFORMATION
  Report Type: 
  Country: None (occurrence: None)
  Receive Date: 20111223
  Receipt Date: 20111216
  Transmission Date: 20120403
  Serious: Yes (Hospitalization, Other)
  Sender: FDA-Public Use
  Company Number: US-AMGEN-USASP2011065131

PATIENT
  Age: 53 Year
  Sex: Male

DRUGS (2)
  1. CORTICOSTEROIDS [Concomitant]
     Dosage: UNK
  2. ENBREL [Suspect]
     Indication: PSORIASIS
     Dosage: UNK
     Dates: start: 20060101, end: 20110401

REACTIONS (4)
  - DIABETIC COMA [None]
  - PSORIASIS [None]
  - DRUG INEFFECTIVE [None]
  - PNEUMONIA [None]
